FAERS Safety Report 7864377-7 (Version None)
Quarter: 2011Q4

REPORT INFORMATION
  Report Type: 
  Country: None (occurrence: None)
  Receive Date: 20111028
  Receipt Date: 20111019
  Transmission Date: 20120403
  Serious: Yes (Hospitalization, Other)
  Sender: FDA-Public Use
  Company Number: IE-MEDIMMUNE-MEDI-0013762

PATIENT
  Sex: Male

DRUGS (3)
  1. SPIRONOLACTONE [Concomitant]
  2. FUROSEMIDE [Concomitant]
  3. SYNAGIS [Suspect]
     Indication: HEART DISEASE CONGENITAL
     Route: 030
     Dates: start: 20111004, end: 20111004

REACTIONS (2)
  - BRONCHIOLITIS [None]
  - INCREASED BRONCHIAL SECRETION [None]
